FAERS Safety Report 16258885 (Version 2)
Quarter: 2019Q2

REPORT INFORMATION
  Report Type: Spontaneous
  Country: US (occurrence: US)
  Receive Date: 20190501
  Receipt Date: 20190614
  Transmission Date: 20190711
  Serious: No
  Sender: FDA-Public Use
  Company Number: US-ASTRAZENECA-2019SE53689

PATIENT
  Age: 65 Year
  Sex: Female
  Weight: 79.4 kg

DRUGS (5)
  1. BEVESPI AEROSPHERE [Suspect]
     Active Substance: FORMOTEROL FUMARATE\GLYCOPYRROLATE
     Indication: TOTAL LUNG CAPACITY DECREASED
     Dosage: 9/4.8 MCG, TWO PUFFS, TWICE A DAY
     Route: 055
     Dates: start: 20160601
  2. ASMANEX [Concomitant]
     Active Substance: MOMETASONE FUROATE
  3. BEVESPI AEROSPHERE [Suspect]
     Active Substance: FORMOTEROL FUMARATE\GLYCOPYRROLATE
     Indication: DYSPNOEA
     Dosage: 9/4.8 MCG, TWO PUFFS, TWICE A DAY
     Route: 055
     Dates: start: 20160601
  4. BABY ASPIRIN [Concomitant]
     Active Substance: ASPIRIN
  5. VENTOLIN [Concomitant]
     Active Substance: ALBUTEROL SULFATE

REACTIONS (6)
  - Bronchitis [Unknown]
  - Dyspnoea [Unknown]
  - Product use in unapproved indication [Unknown]
  - Device issue [Unknown]
  - Wrong technique in product usage process [Unknown]
  - Off label use [Unknown]

NARRATIVE: CASE EVENT DATE: 20190403
